FAERS Safety Report 22323072 (Version 1)
Quarter: 2023Q2

REPORT INFORMATION
  Report Type: Spontaneous
  Country: US (occurrence: None)
  Receive Date: 20230512
  Receipt Date: 20230512
  Transmission Date: 20230722
  Serious: No
  Sender: FDA-Public Use
  Company Number: None

PATIENT
  Sex: Male
  Weight: 76.5 kg

DRUGS (2)
  1. OTEZLA [Suspect]
     Active Substance: APREMILAST
     Indication: Psoriasis
     Dates: start: 20230206
  2. CLARITIN [Concomitant]
     Active Substance: LORATADINE

REACTIONS (6)
  - Headache [None]
  - Nausea [None]
  - Vomiting [None]
  - Gastrointestinal disorder [None]
  - Diarrhoea [None]
  - Anal incontinence [None]
